FAERS Safety Report 11883470 (Version 2)
Quarter: 2016Q1

REPORT INFORMATION
  Report Type: Spontaneous
  Country: MY (occurrence: MY)
  Receive Date: 20151231
  Receipt Date: 20160105
  Transmission Date: 20160526
  Serious: Yes (Other)
  Sender: FDA-Public Use
  Company Number: PHHY2015MY169904

PATIENT
  Age: 21 Year
  Sex: Male

DRUGS (4)
  1. DICLOFENAC [Suspect]
     Active Substance: DICLOFENAC
     Indication: GINGIVAL PAIN
  2. OSPAMOX [Suspect]
     Active Substance: AMOXICILLIN
     Indication: GINGIVAL SWELLING
     Dosage: 1.5 G, QD
  3. OSPAMOX [Suspect]
     Active Substance: AMOXICILLIN
     Indication: GINGIVAL PAIN
  4. DICLOFENAC [Suspect]
     Active Substance: DICLOFENAC
     Indication: GINGIVAL SWELLING
     Dosage: 300 MG, QD
     Route: 048

REACTIONS (8)
  - Pharyngeal oedema [Unknown]
  - Periorbital oedema [Unknown]
  - Lacrimation increased [Unknown]
  - Wheezing [Unknown]
  - Pruritus [Unknown]
  - Cough [Unknown]
  - Overdose [Unknown]
  - Dyspnoea [Unknown]
